FAERS Safety Report 8272241-7 (Version None)
Quarter: 2012Q2

REPORT INFORMATION
  Report Type: 
  Country: None (occurrence: None)
  Receive Date: 20120410
  Receipt Date: 20120329
  Transmission Date: 20120825
  Serious: Yes (Other)
  Sender: FDA-Public Use
  Company Number: PHHY2011JP86466

PATIENT
  Age: 55 Year
  Sex: Male

DRUGS (3)
  1. REMICADE [Suspect]
     Indication: PSORIATIC ARTHROPATHY
     Dosage: UNK UKN, UNK
     Dates: start: 20080801, end: 20100301
  2. NEORAL [Suspect]
     Indication: PSORIASIS
  3. NEORAL [Suspect]
     Indication: PSORIATIC ARTHROPATHY
     Dosage: UNK UKN, UNK
     Dates: start: 19900101, end: 20080801

REACTIONS (3)
  - CELL MARKER INCREASED [None]
  - ARTHRALGIA [None]
  - INTERSTITIAL LUNG DISEASE [None]
